FAERS Safety Report 18350908 (Version 2)
Quarter: 2022Q1

REPORT INFORMATION
  Report Type: Report from Study
  Country: HU (occurrence: HU)
  Receive Date: 20201006
  Receipt Date: 20220323
  Transmission Date: 20220423
  Serious: Yes (Other)
  Sender: FDA-Public Use
  Company Number: HU-NOVARTISPH-NVSC2020HU161064

PATIENT

DRUGS (2)
  1. KISQALI [Suspect]
     Active Substance: RIBOCICLIB
     Indication: Breast cancer
     Dosage: 600 MG, QD (1X)
     Route: 048
     Dates: start: 20200506, end: 20200805
  2. LETROZOLE [Suspect]
     Active Substance: LETROZOLE
     Indication: Breast cancer
     Dosage: 2.5 MG (1X)
     Route: 048
     Dates: start: 20200506, end: 20200805

REACTIONS (2)
  - Metastases to bone [Not Recovered/Not Resolved]
  - Lymphoedema [Unknown]

NARRATIVE: CASE EVENT DATE: 20200702
